FAERS Safety Report 4461623-7 (Version None)
Quarter: 2004Q3

REPORT INFORMATION
  Report Type: 
  Country: None (occurrence: None)
  Receive Date: 20040824
  Receipt Date: 20040608
  Transmission Date: 20050211
  Serious: No
  Sender: FDA-Public Use
  Company Number: 601305

PATIENT
  Age: 38 Year
  Sex: Male
  Weight: 80 kg

DRUGS (7)
  1. ADVATE (ANTIHEMOPHILIC FACTOR (RECOMBINANT), PLASMA/ ALBUMIN FREE METH [Suspect]
     Indication: FACTOR VIII DEFICIENCY
     Dosage: 1000 IU; INTERMITTENT ; INTRAVENOUS
     Route: 042
     Dates: start: 20040426, end: 20040512
  2. EPIVIR [Concomitant]
  3. ZIAGEN [Concomitant]
  4. VIOXX [Concomitant]
  5. KALETRA [Concomitant]
  6. COTRIM [Concomitant]
  7. ANTIHEMOPHILIC FACTOR (HUMAN) [Concomitant]

REACTIONS (1)
  - DERMATITIS ALLERGIC [None]
